FAERS Safety Report 6082482-5 (Version None)
Quarter: 2009Q1

REPORT INFORMATION
  Report Type: 
  Country: None (occurrence: None)
  Receive Date: 20090218
  Receipt Date: 20090213
  Transmission Date: 20090719
  Serious: Yes (Life-Threatening, Hospitalization, Other)
  Sender: FDA-Public Use
  Company Number: FR-BRISTOL-MYERS SQUIBB COMPANY-14498489

PATIENT
  Age: 81 Year
  Sex: Female

DRUGS (10)
  1. GLUCOPHAGE [Suspect]
     Indication: TYPE 2 DIABETES MELLITUS
     Route: 048
     Dates: start: 20010101, end: 20080720
  2. ARIMIDEX [Concomitant]
  3. XYZAL [Concomitant]
     Dosage: 1 DOSAGE FORM  - 1 TABS
     Route: 048
  4. LASILIX [Concomitant]
     Route: 048
  5. ZYLORIC [Concomitant]
  6. TAHOR [Concomitant]
  7. DIASTABOL [Concomitant]
  8. SINTROM [Concomitant]
     Dosage: 1DF-UNITS NOT MENTIONED
     Dates: end: 20080718
  9. DIANTALVIC [Concomitant]
     Dosage: 3DOSAGE FORM -UNITS NOT MENTIONED
  10. VALSARTAN [Concomitant]
     Dates: end: 20080718

REACTIONS (13)
  - CATHETER RELATED INFECTION [None]
  - CONTINUOUS HAEMODIAFILTRATION [None]
  - DEHYDRATION [None]
  - DIARRHOEA [None]
  - ERYSIPELAS [None]
  - HAEMATEMESIS [None]
  - HEPARIN-INDUCED THROMBOCYTOPENIA [None]
  - HYPERGLYCAEMIA [None]
  - LACTIC ACIDOSIS [None]
  - MULTIPLE DRUG OVERDOSE [None]
  - RENAL FAILURE [None]
  - SHOCK [None]
  - VOMITING [None]
